FAERS Safety Report 21978262 (Version 1)
Quarter: 2023Q1

REPORT INFORMATION
  Report Type: Report from Study
  Country: MX (occurrence: MX)
  Receive Date: 20230210
  Receipt Date: 20230210
  Transmission Date: 20230417
  Serious: Yes (Hospitalization, Other)
  Sender: FDA-Public Use
  Company Number: MX-002147023-NVSC2023MX027984

PATIENT
  Age: 63 Year
  Sex: Male

DRUGS (3)
  1. ENTRESTO [Suspect]
     Active Substance: SACUBITRIL\VALSARTAN
     Indication: Product used for unknown indication
     Dosage: 1 DOSAGE FORM, Q12H (1 DF OF 100  MG)
     Route: 048
     Dates: start: 20221210
  2. PANTOZOL [Concomitant]
     Active Substance: PANTOPRAZOLE SODIUM
     Indication: Product used for unknown indication
     Dosage: 1 DOSAGE FORM, Q12H (1 DF OF 40 MG)
     Route: 048
     Dates: start: 20221210
  3. RIOPAN [Concomitant]
     Indication: Haemoglobin decreased
     Dosage: UNK (1 SPOON (WITHOUT STRENGTH), EVERY 20 MINUTES AFTER EATING)
     Route: 048
     Dates: start: 20221210

REACTIONS (4)
  - Large intestine perforation [Recovering/Resolving]
  - Deafness [Not Recovered/Not Resolved]
  - Ear discomfort [Not Recovered/Not Resolved]
  - Anaemia [Recovering/Resolving]

NARRATIVE: CASE EVENT DATE: 20221201
